FAERS Safety Report 19485665 (Version 2)
Quarter: 2021Q3

REPORT INFORMATION
  Report Type: Report from Study
  Country: US (occurrence: US)
  Receive Date: 20210702
  Receipt Date: 20210920
  Transmission Date: 20211014
  Serious: Yes (Other)
  Sender: FDA-Public Use
  Company Number: US-SA-2018SA162415

PATIENT
  Age: 47 Year
  Sex: Female

DRUGS (7)
  1. SEROQUEL [Concomitant]
     Active Substance: QUETIAPINE FUMARATE
     Indication: MENTAL DISORDER
     Dosage: UNK UNK, UNK
     Route: 065
  2. ASPIRIN [ACETYLSALICYLIC ACID] [Concomitant]
     Active Substance: ASPIRIN
     Dosage: LOW DOSE OF ASPIRIN, STOPPED ON 01?JUL?2019
     Route: 065
  3. ATORVASTATIN [Concomitant]
     Active Substance: ATORVASTATIN
     Dosage: 10 MG, UNK
     Route: 065
     Dates: start: 20190719
  4. ASPIRIN [ACETYLSALICYLIC ACID] [Concomitant]
     Active Substance: ASPIRIN
     Dosage: UNK, QOD
     Route: 065
     Dates: start: 20190714, end: 20200116
  5. TERIFLUNOMIDE. [Suspect]
     Active Substance: TERIFLUNOMIDE
     Indication: MULTIPLE SCLEROSIS
     Dosage: 7 MG, QD
     Route: 048
     Dates: start: 20180516
  6. ATIVAN [Concomitant]
     Active Substance: LORAZEPAM
     Indication: MENTAL DISORDER
     Dosage: UNK, PRN
     Route: 065
  7. KLONOPIN [Concomitant]
     Active Substance: CLONAZEPAM
     Indication: MENTAL DISORDER
     Dosage: UNK UNK, UNK
     Route: 065

REACTIONS (45)
  - Condition aggravated [Recovering/Resolving]
  - Nausea [Unknown]
  - Thyroid function test abnormal [Unknown]
  - Multiple sclerosis [Recovered/Resolved]
  - Gastrooesophageal reflux disease [Unknown]
  - Throat irritation [Recovering/Resolving]
  - Anxiety disorder [Not Recovered/Not Resolved]
  - Glossodynia [Recovered/Resolved]
  - Mental disorder [Not Recovered/Not Resolved]
  - Menopausal symptoms [Unknown]
  - Menopausal symptoms [Unknown]
  - Night sweats [Unknown]
  - Malabsorption [Not Recovered/Not Resolved]
  - Muscular weakness [Not Recovered/Not Resolved]
  - Headache [Unknown]
  - Vitamin B12 increased [Unknown]
  - Blood zinc decreased [Unknown]
  - Blood thyroid stimulating hormone increased [Unknown]
  - Eye irritation [Recovered/Resolved]
  - Dyspepsia [Recovered/Resolved]
  - Gastric disorder [Not Recovered/Not Resolved]
  - Tonsillolith [Not Recovered/Not Resolved]
  - Musculoskeletal disorder [Unknown]
  - Paraesthesia oral [Unknown]
  - Paraesthesia [Not Recovered/Not Resolved]
  - Lip pain [Recovered/Resolved]
  - Pain in extremity [Not Recovered/Not Resolved]
  - Impaired gastric emptying [Recovering/Resolving]
  - Abdominal pain upper [Unknown]
  - Panic attack [Not Recovered/Not Resolved]
  - Anxiety [Not Recovered/Not Resolved]
  - Eye disorder [Recovered/Resolved]
  - Muscle discomfort [Not Recovered/Not Resolved]
  - Pain [Not Recovered/Not Resolved]
  - Neck pain [Not Recovered/Not Resolved]
  - Nervousness [Unknown]
  - Injury corneal [Recovered/Resolved]
  - Vision blurred [Recovered/Resolved]
  - Agitation [Not Recovered/Not Resolved]
  - Eructation [Recovering/Resolving]
  - Heavy menstrual bleeding [Unknown]
  - Gingival recession [Unknown]
  - Diabetic neuropathy [Not Recovered/Not Resolved]
  - Hypoaesthesia [Unknown]
  - Eye pain [Recovered/Resolved]

NARRATIVE: CASE EVENT DATE: 2018
